FAERS Safety Report 14315229 (Version 4)
Quarter: 2021Q4

REPORT INFORMATION
  Report Type: Report from Study
  Country: FR (occurrence: FR)
  Receive Date: 20171221
  Receipt Date: 20211029
  Transmission Date: 20220303
  Serious: Yes (Other)
  Sender: FDA-Public Use
  Company Number: None

PATIENT
  Sex: Female

DRUGS (27)
  1. METHOTREXATE [Suspect]
     Active Substance: METHOTREXATE
     Indication: Acute lymphocytic leukaemia
     Dosage: DOSAGE FORM: UNSPECIFIED
     Route: 037
  2. METHOTREXATE [Suspect]
     Active Substance: METHOTREXATE
     Dosage: DOSAGE FORM: UNSPECIFIED
     Route: 037
     Dates: start: 20170928
  3. METHOTREXATE [Suspect]
     Active Substance: METHOTREXATE
     Dosage: DOSAGE FORM: UNSPECIFIED
     Route: 037
     Dates: start: 201705, end: 201705
  4. METHOTREXATE [Suspect]
     Active Substance: METHOTREXATE
     Dosage: 10 MILLIGRAM
     Route: 037
     Dates: start: 20161107, end: 20171027
  5. DEXAMETHASONE [Suspect]
     Active Substance: DEXAMETHASONE
     Indication: Acute lymphocytic leukaemia
     Dosage: DOSAGE FORM: UNSPECIFIED
     Route: 065
     Dates: start: 20170925, end: 20171015
  6. DEXAMETHASONE [Suspect]
     Active Substance: DEXAMETHASONE
     Dosage: 42 MILLIGRAM (DOSAGE FORM: UNSPECIFIED)
     Route: 065
     Dates: start: 20170909, end: 20171015
  7. DEXAMETHASONE [Suspect]
     Active Substance: DEXAMETHASONE
     Dosage: 5 MILLIGRAM
     Route: 048
     Dates: start: 20161112, end: 20171016
  8. VINCRISTINE [Suspect]
     Active Substance: VINCRISTINE
     Indication: Acute lymphocytic leukaemia
     Dosage: DOSAGE FORM: UNSPECIFIED
     Route: 065
     Dates: start: 20170925, end: 20171009
  9. VINCRISTINE [Suspect]
     Active Substance: VINCRISTINE
     Dosage: DOSAGE FORM: UNSPECIFIED
     Route: 065
     Dates: start: 20170704, end: 20170704
  10. VINCRISTINE [Suspect]
     Active Substance: VINCRISTINE
     Dosage: DOSAGE FORM: UNSPECIFIED
     Route: 065
     Dates: start: 20170606, end: 20170606
  11. VINCRISTINE [Suspect]
     Active Substance: VINCRISTINE
     Dosage: DOSAGE FORM: UNSPECIFIED
     Route: 065
     Dates: start: 20170523, end: 20170523
  12. VINCRISTINE [Suspect]
     Active Substance: VINCRISTINE
     Dosage: DOSAGE FORM: UNSPECIFIED
     Route: 065
     Dates: start: 20170711, end: 20170711
  13. VINCRISTINE [Suspect]
     Active Substance: VINCRISTINE
     Dosage: DOSAGE FORM: UNSPECIFIED
     Route: 065
  14. PEGASPARGASE [Suspect]
     Active Substance: PEGASPARGASE
     Indication: Acute lymphocytic leukaemia
     Dosage: 1350 IU, UNK
     Route: 065
     Dates: start: 20170704, end: 20170704
  15. PEGASPARGASE [Suspect]
     Active Substance: PEGASPARGASE
     Dosage: 1425 IU, UNK
     Route: 042
     Dates: start: 20170928, end: 20170928
  16. PEGASPARGASE [Suspect]
     Active Substance: PEGASPARGASE
     Dosage: 1350 IU, UNK
     Route: 065
     Dates: start: 20170526, end: 20170526
  17. CYTARABINE [Suspect]
     Active Substance: CYTARABINE
     Indication: Acute lymphocytic leukaemia
     Dosage: DOSAGE FORM: UNSPECIFIED
     Route: 037
     Dates: start: 201705, end: 201705
  18. CYTARABINE [Suspect]
     Active Substance: CYTARABINE
     Dosage: DOSAGE FORM: UNSPECIFIED
     Route: 037
     Dates: start: 20170928, end: 20170928
  19. CYTARABINE [Suspect]
     Active Substance: CYTARABINE
     Dosage: DOSAGE FORM: UNSPECIFIED
     Route: 037
     Dates: start: 2017, end: 2017
  20. HYDROCORTISONE [Suspect]
     Active Substance: HYDROCORTISONE
     Indication: Acute lymphocytic leukaemia
     Dosage: DOSAGE FORM: UNSPECIFIED
     Route: 037
     Dates: start: 20170928, end: 20170928
  21. HYDROCORTISONE [Suspect]
     Active Substance: HYDROCORTISONE
     Dosage: 15 UNK
     Route: 037
     Dates: start: 20170303, end: 20171027
  22. DOXORUBICIN HYDROCHLORIDE [Suspect]
     Active Substance: DOXORUBICIN HYDROCHLORIDE
     Indication: Acute lymphocytic leukaemia
     Dosage: 13.2 MG, UNK
     Route: 065
     Dates: start: 20170530, end: 20170530
  23. DOXORUBICIN HYDROCHLORIDE [Suspect]
     Active Substance: DOXORUBICIN HYDROCHLORIDE
     Dosage: 14.4 MG, UNK
     Route: 065
     Dates: start: 20170925, end: 20171009
  24. DOXORUBICIN HYDROCHLORIDE [Suspect]
     Active Substance: DOXORUBICIN HYDROCHLORIDE
     Dosage: 13.2 MG, UNK
     Route: 065
     Dates: start: 20170606, end: 20170606
  25. DOXORUBICIN HYDROCHLORIDE [Suspect]
     Active Substance: DOXORUBICIN HYDROCHLORIDE
     Dosage: 13.2 MG, UNK
     Route: 065
     Dates: start: 20170523, end: 20170523
  26. MERCAPTOPURINE [Suspect]
     Active Substance: MERCAPTOPURINE
     Indication: Acute lymphocytic leukaemia
     Dosage: DOSAGE FORM: UNSPECIFIED
     Route: 065
  27. CYCLOPHOSPHAMIDE [Suspect]
     Active Substance: CYCLOPHOSPHAMIDE
     Indication: Acute lymphocytic leukaemia
     Dosage: 540 MILLIGRAM (DOSAGE FORM: UNSPECIFIED)
     Route: 065
     Dates: start: 20170620, end: 20170620

REACTIONS (3)
  - Off label use [Unknown]
  - Product use in unapproved indication [Unknown]
  - Hyperlipidaemia [Not Recovered/Not Resolved]

NARRATIVE: CASE EVENT DATE: 20170523
